FAERS Safety Report 7173102-7 (Version None)
Quarter: 2010Q4

REPORT INFORMATION
  Report Type: 
  Country: None (occurrence: None)
  Receive Date: 20101219
  Receipt Date: 20100221
  Transmission Date: 20110411
  Serious: No
  Sender: FDA-Public Use
  Company Number: US-AMGEN-KDL394303

PATIENT

DRUGS (2)
  1. ENBREL [Suspect]
     Indication: PSORIASIS
     Dosage: 25 MG, 2 TIMES/WK
     Route: 058
     Dates: start: 20100210
  2. METHOTREXATE [Concomitant]
     Dosage: 15 MG, QWK

REACTIONS (4)
  - ASTHENIA [None]
  - DIZZINESS [None]
  - HEADACHE [None]
  - INJECTION SITE PAIN [None]
